FAERS Safety Report 16635023 (Version 1)
Quarter: 2019Q3

REPORT INFORMATION
  Report Type: Spontaneous
  Country: FR (occurrence: FR)
  Receive Date: 20190726
  Receipt Date: 20190726
  Transmission Date: 20191004
  Serious: Yes (Hospitalization)
  Sender: FDA-Public Use
  Company Number: FR-SUN PHARMACEUTICAL INDUSTRIES LTD-2019RR-215315

PATIENT
  Age: 61 Year
  Sex: Female
  Weight: 38 kg

DRUGS (4)
  1. NEULEPTIL [PERICIAZINE] [Suspect]
     Active Substance: PERICIAZINE
     Indication: MEDICATION ERROR
     Dosage: IN TOTAL
     Route: 048
     Dates: start: 20190604, end: 20190604
  2. DEPAMIDE 300 MG, COMPRIM? PELLICULE GASTRO-RESISTANT [Suspect]
     Active Substance: VALPROMIDE
     Indication: MEDICATION ERROR
     Dosage: IN TOTAL
     Route: 048
     Dates: start: 20190604, end: 20190604
  3. LOXAPAC 25 MG, COMPRIME PELLICULE [Suspect]
     Active Substance: LOXAPINE SUCCINATE
     Indication: WRONG DRUG
     Dosage: IN TOTAL
     Route: 048
     Dates: start: 20190604, end: 20190604
  4. GABAPENTINE [Suspect]
     Active Substance: GABAPENTIN
     Indication: WRONG DRUG
     Dosage: IN TOTAL
     Route: 048
     Dates: start: 20190604, end: 20190604

REACTIONS (3)
  - Coma [Recovering/Resolving]
  - Tachycardia [Recovering/Resolving]
  - Respiratory acidosis [Recovering/Resolving]

NARRATIVE: CASE EVENT DATE: 20190604
